FAERS Safety Report 15697966 (Version 1)
Quarter: 2018Q4

REPORT INFORMATION
  Report Type: Spontaneous
  Country: US (occurrence: US)
  Receive Date: 20181207
  Receipt Date: 20181207
  Transmission Date: 20190205
  Serious: No
  Sender: FDA-Public Use
  Company Number: US-PFIZER INC-2018499948

PATIENT
  Age: 57 Year
  Sex: Female

DRUGS (1)
  1. NEURONTIN [Suspect]
     Active Substance: GABAPENTIN
     Dosage: 3000 MG, DAILY, (TWO TABLETS BY MOUTH EVERY MORNING, ONE TABLET AT LUNCH AND TWO TABLETS AT BEDTIME)
     Route: 048

REACTIONS (2)
  - Overdose [Unknown]
  - Drug ineffective [Unknown]
